FAERS Safety Report 24119721 (Version 1)
Quarter: 2024Q3

REPORT INFORMATION
  Report Type: Report from Study
  Country: CO (occurrence: CO)
  Receive Date: 20240722
  Receipt Date: 20240722
  Transmission Date: 20241016
  Serious: Yes (Other)
  Sender: REGENERON
  Company Number: CO-BAYER-2024A069578

PATIENT
  Age: 67 Year
  Sex: Female

DRUGS (4)
  1. EYLEA [Suspect]
     Active Substance: AFLIBERCEPT
     Indication: Age-related macular degeneration
     Dosage: UNK, IN BOTH EYES, 40 MG/ML, SOLUTION FOR INJECTION
     Dates: start: 20231123, end: 20231123
  2. EYLEA [Suspect]
     Active Substance: AFLIBERCEPT
     Indication: Neovascular age-related macular degeneration
     Dosage: UNK, IN BOTH EYES, 40 MG/ML, SOLUTION FOR INJECTION
     Dates: start: 20231219, end: 20231219
  3. EYLEA [Suspect]
     Active Substance: AFLIBERCEPT
     Dosage: UNK, IN BOTH EYES, 40 MG/ML, SOLUTION FOR INJECTION
     Dates: start: 20240126
  4. EYLEA [Suspect]
     Active Substance: AFLIBERCEPT
     Dosage: UNK, IN BOTH EYES, 40 MG/ML, SOLUTION FOR INJECTION
     Dates: start: 20240709

REACTIONS (3)
  - Neovascular age-related macular degeneration [Not Recovered/Not Resolved]
  - Inappropriate schedule of product administration [Unknown]
  - Inappropriate schedule of product administration [Not Recovered/Not Resolved]

NARRATIVE: CASE EVENT DATE: 20240301
